FAERS Safety Report 6917226-5 (Version None)
Quarter: 2010Q3

REPORT INFORMATION
  Report Type: 
  Country: None (occurrence: None)
  Receive Date: 20100805
  Receipt Date: 20100727
  Transmission Date: 20110219
  Serious: Yes (Hospitalization)
  Sender: FDA-Public Use
  Company Number: 2010070068

PATIENT
  Age: 52 Year
  Sex: Female

DRUGS (9)
  1. ONSOLIS [Suspect]
     Indication: CANCER PAIN
     Dosage: SEE IMAGE, BU
     Route: 002
     Dates: start: 20100130, end: 20100304
  2. ONSOLIS [Suspect]
     Indication: CANCER PAIN
     Dosage: SEE IMAGE, BU
     Route: 002
     Dates: start: 20100305, end: 20100521
  3. ONSOLIS [Suspect]
     Indication: CANCER PAIN
     Dosage: SEE IMAGE, BU
     Route: 002
     Dates: start: 20100522
  4. OXYCONTIN [Concomitant]
  5. OXYCONTIN [Concomitant]
  6. PREVACID [Concomitant]
  7. CITALOPRAM HYDROBROMIDE [Concomitant]
  8. COUMADIN [Concomitant]
  9. OXYCODONE HCL [Concomitant]

REACTIONS (4)
  - ABDOMINAL PAIN [None]
  - BLOOD MAGNESIUM DECREASED [None]
  - CATHETER SITE INFECTION [None]
  - DEHYDRATION [None]
